FAERS Safety Report 10142801 (Version 1)
Quarter: 2014Q2

REPORT INFORMATION
  Report Type: Spontaneous
  Country: US (occurrence: None)
  Receive Date: 20140429
  Receipt Date: 20140429
  Transmission Date: 20141212
  Serious: Yes (Disabling)
  Sender: FDA-Public Use
  Company Number: None

PATIENT
  Age: 54 Year
  Sex: Female
  Weight: 86.18 kg

DRUGS (42)
  1. DULOXETINE HCL [Suspect]
     Indication: PAIN
     Route: 048
     Dates: start: 20140103, end: 20140406
  2. DULOXETINE HCL [Suspect]
     Indication: ANXIETY
     Route: 048
     Dates: start: 20140103, end: 20140406
  3. DULOXETINE HCL [Suspect]
     Indication: FIBROMYALGIA
     Route: 048
     Dates: start: 20140103, end: 20140406
  4. GLIMEPRIDE [Concomitant]
  5. JANUVIA [Concomitant]
  6. LOTREL [Concomitant]
  7. METFORMIN [Concomitant]
  8. ZANAFLEX [Concomitant]
  9. LYRICA [Concomitant]
  10. ULTRAM [Concomitant]
  11. ADVAIR DISKUS [Concomitant]
  12. ACIDOPHILUS [Concomitant]
  13. ALPHA LIPOIC ACID [Concomitant]
  14. ASPIRIN [Concomitant]
  15. BIOTIN [Concomitant]
  16. BOSWELLIA [Concomitant]
  17. CHROMIUM PICOLINATE [Concomitant]
  18. CINNAMON [Concomitant]
  19. COQ10 [Concomitant]
  20. D-RIBOSE [Concomitant]
  21. FISH OIL [Concomitant]
  22. IODINE [Concomitant]
  23. MAGNESIUM [Concomitant]
  24. MELATONIN [Concomitant]
  25. MILK THISTLE [Concomitant]
  26. MULTIPLE VITAMIN/MINERAL [Concomitant]
  27. PEPCID [Concomitant]
  28. RESVERATROL [Concomitant]
  29. TURMERIC [Concomitant]
  30. VALERIAN [Concomitant]
  31. CHAMOMILE [Concomitant]
  32. HOPS [Concomitant]
  33. SKULLCAP [Concomitant]
  34. I-TAURINE [Concomitant]
  35. PASSIONFLOWER [Concomitant]
  36. GABA [Concomitant]
  37. VITAMIN B COMPLEX [Concomitant]
  38. VITAMIN C [Concomitant]
  39. VITAMIN D [Concomitant]
  40. ZINC [Concomitant]
  41. JANUVIA [Concomitant]
  42. NASONEX [Concomitant]

REACTIONS (4)
  - Pain [None]
  - Musculoskeletal stiffness [None]
  - Anxiety [None]
  - Product substitution issue [None]
